FAERS Safety Report 4514512-3 (Version None)
Quarter: 2004Q4

REPORT INFORMATION
  Report Type: 
  Country: None (occurrence: None)
  Receive Date: 20041126
  Receipt Date: 20421115
  Transmission Date: 20050328
  Serious: Yes (Other)
  Sender: FDA-Public Use
  Company Number: 2004086675

PATIENT
  Age: 78 Year
  Sex: Female

DRUGS (13)
  1. SUDAFED 12 HOUR [Suspect]
     Indication: HYPERSENSITIVITY
     Dosage: 1-2 TABLETS DAILY; ORAL
     Route: 048
     Dates: end: 20030101
  2. SERETIDE MITE (FLUTICASONE PROPIONATE, SALMETEROL XINAFOATE) [Suspect]
     Indication: ASTHMA
     Dosage: 4 PUFFS OD LATER REDUCED TO 1 PUFF
     Dates: start: 20000101
  3. FLUTICASONE PROPIONATE (BLUTICASONE PROPIONATE) [Suspect]
     Indication: ASTHMA
     Dosage: UNSPECIFIED, NASAL
     Route: 045
  4. SALMETEROL XINAFOATE (SALMETEROL XINAFOATE) [Suspect]
     Indication: ASTHMA
     Dosage: UNSPECIFIED AMT, INHALATION
     Route: 055
  5. FLUTICASONE PROPIONATE [Suspect]
     Indication: ASTHMA
     Dosage: UNSPECIFIED AMT, INHALATION
     Route: 055
  6. OXYGEN [Concomitant]
  7. ... [Concomitant]
     Dates: start: 20000101
  8. ... [Concomitant]
  9. .... [Concomitant]
  10. ... [Concomitant]
  11. ... [Concomitant]
     Dates: end: 20030101
  12. ... [Concomitant]
     Dates: start: 20000101
  13. .... [Concomitant]

REACTIONS (7)
  - ASTHMA [None]
  - EPISTAXIS [None]
  - FLATULENCE [None]
  - GASTROINTESTINAL DISORDER [None]
  - HYPERTENSION [None]
  - MACULAR DEGENERATION [None]
  - MULTIPLE ALLERGIES [None]
